FAERS Safety Report 5008979-4 (Version None)
Quarter: 2006Q2

REPORT INFORMATION
  Report Type: 
  Country: None (occurrence: None)
  Receive Date: 20060519
  Receipt Date: 20060509
  Transmission Date: 20061013
  Serious: Yes (Hospitalization, Other)
  Sender: FDA-Public Use
  Company Number: ITWYE197801DEC05

PATIENT
  Age: 73 Year
  Sex: Male

DRUGS (1)
  1. RAPAMUNE [Suspect]
     Indication: PROPHYLAXIS AGAINST TRANSPLANT REJECTION
     Dosage: 8 MG DAILY ON 29-NOV-2005, ORAL
     Route: 048
     Dates: start: 20050811, end: 20060127

REACTIONS (9)
  - ABDOMINAL PAIN UPPER [None]
  - BACTERIAL INFECTION [None]
  - BLOOD CREATININE INCREASED [None]
  - COUGH [None]
  - DIARRHOEA [None]
  - ENTEROBACTER INFECTION [None]
  - KLEBSIELLA INFECTION [None]
  - SPUTUM CULTURE POSITIVE [None]
  - STENOTROPHOMONAS INFECTION [None]
